FAERS Safety Report 7236811-7 (Version None)
Quarter: 2011Q1

REPORT INFORMATION
  Report Type: 
  Country: None (occurrence: None)
  Receive Date: 20110120
  Receipt Date: 20110112
  Transmission Date: 20110831
  Serious: No
  Sender: FDA-Public Use
  Company Number: US-B.I. PHARMACEUTICALS,INC./RIDGEFIELD-2011-BP-01171BP

PATIENT
  Sex: Male

DRUGS (6)
  1. RYTHMOL [Suspect]
     Indication: CARDIAC DISORDER
     Dosage: 450 MG
     Route: 048
     Dates: start: 20110111
  2. CARDIZEM CD [Concomitant]
     Indication: HYPERTENSION
     Dosage: 120 MG
     Route: 048
     Dates: start: 20110112
  3. PRADAXA [Suspect]
     Indication: ATRIAL FIBRILLATION
     Dosage: 300 MG
     Route: 048
     Dates: start: 20110111
  4. LIPITOR [Concomitant]
     Indication: BLOOD CHOLESTEROL INCREASED
     Dosage: 10 MG
     Route: 048
     Dates: start: 20110112
  5. METFORMIN [Concomitant]
     Indication: METABOLIC DISORDER
     Dosage: 2000 MG
     Route: 048
     Dates: start: 20080101
  6. ALLOPURINOL [Concomitant]
     Indication: NEPHROLITHIASIS
     Dosage: 300 MG
     Route: 048
     Dates: start: 20080101

REACTIONS (1)
  - FAECES DISCOLOURED [None]
